FAERS Safety Report 11455318 (Version 1)
Quarter: 2015Q3

REPORT INFORMATION
  Report Type: Spontaneous
  Country: GB (occurrence: GB)
  Receive Date: 20150903
  Receipt Date: 20150903
  Transmission Date: 20151125
  Serious: Yes (Other)
  Sender: FDA-Public Use
  Company Number: GB-BAYER-2015-406310

PATIENT
  Age: 69 Year
  Sex: Male

DRUGS (1)
  1. CIPROFLOXACIN. [Suspect]
     Active Substance: CIPROFLOXACIN
     Indication: ANTIBIOTIC PROPHYLAXIS
     Dosage: UNK

REACTIONS (10)
  - Drug resistance [None]
  - Intervertebral discitis [None]
  - Pyrexia [None]
  - Radiculopathy [None]
  - Extradural abscess [None]
  - Hypoaesthesia [None]
  - Back pain [None]
  - Activities of daily living impaired [None]
  - Drug ineffective [None]
  - Chills [None]
